FAERS Safety Report 8791553 (Version 1)
Quarter: 2012Q4

REPORT INFORMATION
  Report Type: Spontaneous
  Country: KR (occurrence: None)
  Receive Date: 20120913
  Receipt Date: 20120913
  Transmission Date: 20130627
  Serious: Yes (Hospitalization)
  Sender: FDA-Public Use
  Company Number: 1398795

PATIENT
  Age: 19 Year
  Sex: Female

DRUGS (3)
  1. CYTARABINE [Suspect]
     Indication: ACUTE MYELOID LEUKEMIA
  2. FLUDARABINE PHOSPHATE [Suspect]
     Indication: ACUTE MYELOID LEUKEMIA
  3. IDARUBICIN [Suspect]
     Indication: ACUTE MYELOID LEUKEMIA

REACTIONS (9)
  - Bronchopulmonary aspergillosis [None]
  - Pneumonia cytomegaloviral [None]
  - White blood cell count decreased [None]
  - Neutrophil count decreased [None]
  - Pulmonary necrosis [None]
  - Stem cell transplant [None]
  - Diarrhoea [None]
  - Abdominal pain [None]
  - Graft versus host disease [None]
